FAERS Safety Report 17197961 (Version 1)
Quarter: 2019Q4

REPORT INFORMATION
  Report Type: Spontaneous
  Country: GB (occurrence: GB)
  Receive Date: 20191225
  Receipt Date: 20191225
  Transmission Date: 20200122
  Serious: Yes (Other)
  Sender: FDA-Public Use
  Company Number: GB-AUROBINDO-AUR-APL-2019-106995

PATIENT
  Age: 27 Year
  Sex: Female

DRUGS (1)
  1. QUETIAPINE FILM-COATED TABLET [Suspect]
     Active Substance: QUETIAPINE
     Indication: PRODUCT USED FOR UNKNOWN INDICATION
     Dosage: 100 MILLIGRAM (4 DAILY FOR 7 DAYS THEN REDUCE ONE TABLET EVERY WEEK TILL ZERO. DISPENSE MON, TUE, WE
     Route: 048

REACTIONS (3)
  - Accidental overdose [Recovered/Resolved]
  - Product dispensing error [Unknown]
  - Hallucination, auditory [Unknown]
